FAERS Safety Report 8549685-9 (Version None)
Quarter: 2012Q3

REPORT INFORMATION
  Report Type: 
  Country: None (occurrence: None)
  Receive Date: 20120730
  Receipt Date: 20120723
  Transmission Date: 20120928
  Serious: Yes (Other)
  Sender: FDA-Public Use
  Company Number: BR-PFIZER INC-2012177654

PATIENT
  Age: 75 Year
  Sex: Female
  Weight: 69 kg

DRUGS (1)
  1. XALATAN [Suspect]
     Indication: INTRAOCULAR PRESSURE TEST
     Dosage: 1.5 UG, 1X/DAY (ONE DROP IN ONE EYE, ONCE A DAY)
     Route: 047
     Dates: start: 20120313

REACTIONS (2)
  - INTRAOCULAR PRESSURE INCREASED [None]
  - CATARACT [None]
